FAERS Safety Report 4272771-9 (Version None)
Quarter: 2004Q1

REPORT INFORMATION
  Report Type: 
  Country: None (occurrence: None)
  Receive Date: 20040114
  Receipt Date: 20031110
  Transmission Date: 20041129
  Serious: Yes (Death)
  Sender: FDA-Public Use
  Company Number: 03-040P

PATIENT
  Age: 27 Year

DRUGS (2)
  1. HYDROCODONE BITARTRATE AND ACETAMINOPHEN [Suspect]
     Dates: end: 20020101
  2. METHAMPHETAMINE HYDROCHLORIDE [Concomitant]
     Dates: end: 20020101

REACTIONS (1)
  - CARDIO-RESPIRATORY ARREST [None]
